FAERS Safety Report 20145741 (Version 1)
Quarter: 2021Q4

REPORT INFORMATION
  Report Type: Spontaneous
  Country: US (occurrence: None)
  Receive Date: 20211202
  Receipt Date: 20211202
  Transmission Date: 20220304
  Serious: No
  Sender: FDA-Public Use
  Company Number: None

PATIENT

DRUGS (6)
  1. BUPROPION HYDROCHLORIDE [Suspect]
     Active Substance: BUPROPION HYDROCHLORIDE
     Route: 048
  2. BUPROPION [Suspect]
     Active Substance: BUPROPION
     Route: 048
  3. RETACRIT [Suspect]
     Active Substance: EPOETIN ALFA-EPBX
  4. ATROPINE [Suspect]
     Active Substance: ATROPINE
  5. PHENYLEPHRINE [Suspect]
     Active Substance: PHENYLEPHRINE HYDROCHLORIDE
  6. RETACRIT [Suspect]
     Active Substance: EPOETIN ALFA-EPBX

REACTIONS (5)
  - Product label confusion [None]
  - Product appearance confusion [None]
  - Product label confusion [None]
  - Wrong product stored [None]
  - Product packaging confusion [None]
